FAERS Safety Report 6389435-8 (Version None)
Quarter: 2009Q4

REPORT INFORMATION
  Report Type: 
  Country: None (occurrence: None)
  Receive Date: 20091006
  Receipt Date: 20090929
  Transmission Date: 20100525
  Serious: Yes (Death)
  Sender: FDA-Public Use
  Company Number: JP-JNJFOC-20090905344

PATIENT
  Sex: Female

DRUGS (9)
  1. CRAVIT [Suspect]
     Route: 048
     Dates: start: 20090908, end: 20090910
  2. CRAVIT [Suspect]
     Indication: URINARY TRACT INFECTION
     Route: 048
     Dates: start: 20090908, end: 20090910
  3. GASMOTIN [Concomitant]
     Indication: GASTRITIS
     Route: 065
  4. AMLODIPINE [Concomitant]
     Indication: HYPERTENSION
     Route: 065
  5. SIGMART [Concomitant]
     Indication: MYOCARDIAL INFARCTION
     Route: 065
     Dates: start: 20090618, end: 20090910
  6. LAC-B [Concomitant]
     Indication: DIARRHOEA
     Route: 065
     Dates: start: 20090709, end: 20090910
  7. ASPIRIN [Concomitant]
     Indication: CEREBRAL INFARCTION
     Route: 065
     Dates: start: 20090618, end: 20090912
  8. PROTECADIN [Concomitant]
     Indication: GASTRITIS
     Route: 065
     Dates: start: 20090618, end: 20090912
  9. BFLUID [Concomitant]
     Indication: NUTRITIONAL SUPPORT
     Route: 065
     Dates: start: 20090625, end: 20090912

REACTIONS (1)
  - INTERSTITIAL LUNG DISEASE [None]
